FAERS Safety Report 17554023 (Version 1)
Quarter: 2020Q1

REPORT INFORMATION
  Report Type: Report from Study
  Country: IT (occurrence: IT)
  Receive Date: 20200318
  Receipt Date: 20200318
  Transmission Date: 20200409
  Serious: Yes (Hospitalization)
  Sender: FDA-Public Use
  Company Number: IT-TEVA-2020-IT-1202430

PATIENT
  Age: 77 Year
  Sex: Male

DRUGS (7)
  1. PRADAXA [Interacting]
     Active Substance: DABIGATRAN ETEXILATE MESYLATE
     Indication: ATRIAL FIBRILLATION
     Dosage: 220 MG
     Route: 048
     Dates: end: 20200131
  2. OLMESARTAN MEDOXOMIL/AMLODIPINA [Concomitant]
  3. BISOPROLOL HEMIFUMARATE [Concomitant]
     Active Substance: BISOPROLOL FUMARATE
  4. AMIODARONE [Concomitant]
     Active Substance: AMIODARONE
  5. FUROSEMIDE. [Concomitant]
     Active Substance: FUROSEMIDE
  6. EZETIMIBE/SIMVASTATINA [Concomitant]
  7. CLOPIDOGREL [Suspect]
     Active Substance: CLOPIDOGREL BISULFATE
     Indication: ATRIAL FIBRILLATION
     Dosage: 75 MG
     Route: 048

REACTIONS (3)
  - Subarachnoid haemorrhage [Recovering/Resolving]
  - Drug interaction [Recovering/Resolving]
  - Spontaneous haemorrhage [Recovering/Resolving]

NARRATIVE: CASE EVENT DATE: 20200131
